FAERS Safety Report 23469022 (Version 1)
Quarter: 2024Q1

REPORT INFORMATION
  Report Type: Spontaneous
  Country: US (occurrence: US)
  Receive Date: 20240202
  Receipt Date: 20240202
  Transmission Date: 20240409
  Serious: No
  Sender: FDA-Public Use
  Company Number: US-ELI_LILLY_AND_COMPANY-US202401018121

PATIENT
  Age: 86 Year
  Sex: Male

DRUGS (1)
  1. RETEVMO [Suspect]
     Active Substance: SELPERCATINIB
     Indication: Neoplasm malignant
     Dosage: 160 MG, BID
     Route: 048
     Dates: start: 2023

REACTIONS (1)
  - Vomiting [Not Recovered/Not Resolved]
